FAERS Safety Report 8886435 (Version 1)
Quarter: 2012Q4

REPORT INFORMATION
  Report Type: 
  Country: AR (occurrence: AR)
  Receive Date: 20121105
  Receipt Date: 20121105
  Transmission Date: 20130627
  Serious: Yes (Other)
  Sender: FDA-Public Use
  Company Number: PHHY2012AR100711

PATIENT
  Sex: Female

DRUGS (2)
  1. DIOVAN [Suspect]
     Dosage: 80 mg, UNK
  2. EXFORGE [Suspect]
     Indication: HYPERTENSION
     Dosage: 1 DF (80/5mg) per day
     Dates: start: 2007

REACTIONS (4)
  - Umbilical hernia [Recovering/Resolving]
  - Malaise [Recovering/Resolving]
  - Gastrointestinal inflammation [Recovering/Resolving]
  - Haemorrhoids [Recovering/Resolving]
